FAERS Safety Report 24374316 (Version 1)
Quarter: 2024Q3

REPORT INFORMATION
  Report Type: Report from Study
  Country: US (occurrence: US)
  Receive Date: 20240927
  Receipt Date: 20240927
  Transmission Date: 20241016
  Serious: Yes (Death, Hospitalization, Other)
  Sender: MYLAN
  Company Number: US-MYLANLABS-2024M1087289

PATIENT
  Sex: Female
  Weight: 62.14 kg

DRUGS (11)
  1. GABAPENTIN [Suspect]
     Active Substance: GABAPENTIN
     Indication: Neuralgia
     Dosage: 300 MILLIGRAM, TID (ONE CAPSULE, 3 TIMES A DAY)
     Route: 065
     Dates: start: 202405
  2. GABAPENTIN [Suspect]
     Active Substance: GABAPENTIN
     Dosage: 600 MILLIGRAM, TID (2 PILLS 3 TIMES DAILY)
     Route: 065
     Dates: start: 202408
  3. TUKYSA [Suspect]
     Active Substance: TUCATINIB
     Indication: Product used for unknown indication
     Dosage: UNK
     Route: 065
     Dates: start: 2024
  4. ENHERTU [Suspect]
     Active Substance: FAM-TRASTUZUMAB DERUXTECAN-NXKI
     Indication: Breast cancer metastatic
     Dosage: UNK
     Route: 065
     Dates: start: 202405
  5. DEXAMETHASONE [Suspect]
     Active Substance: DEXAMETHASONE
     Indication: Product used for unknown indication
     Dosage: UNK
     Route: 065
     Dates: start: 2024
  6. OXYCODONE [Suspect]
     Active Substance: OXYCODONE
     Indication: Headache
     Dosage: UNK
     Route: 065
     Dates: start: 2024
  7. XELODA [Suspect]
     Active Substance: CAPECITABINE
     Indication: Product used for unknown indication
     Dosage: UNK
     Route: 065
     Dates: start: 2024
  8. HERCEPTIN [Suspect]
     Active Substance: TRASTUZUMAB
     Indication: Product used for unknown indication
     Dosage: UNK
     Route: 065
     Dates: start: 2024
  9. ZOFRAN [Suspect]
     Active Substance: ONDANSETRON HYDROCHLORIDE
     Indication: Product used for unknown indication
     Dosage: UNK
     Route: 065
     Dates: start: 2024
  10. COMPAZINE [Suspect]
     Active Substance: PROCHLORPERAZINE MALEATE
     Indication: Nausea
     Dosage: UNK
     Route: 065
     Dates: start: 2024
  11. DECADRON [Suspect]
     Active Substance: DEXAMETHASONE
     Indication: Intracranial mass
     Dosage: UNK
     Route: 065
     Dates: start: 2024

REACTIONS (15)
  - Death [Fatal]
  - Dysgeusia [Unknown]
  - Oesophageal rupture [Unknown]
  - Vomiting [Unknown]
  - Meningitis [Unknown]
  - Metastases to meninges [Unknown]
  - Haematemesis [Unknown]
  - Oesophageal ulcer [Unknown]
  - Eosinophilic oesophagitis [Unknown]
  - Intracranial mass [Unknown]
  - Lethargy [Unknown]
  - Headache [Unknown]
  - Asthenia [Unknown]
  - Off label use [Unknown]
  - Product dose omission issue [Unknown]

NARRATIVE: CASE EVENT DATE: 20240101
